FAERS Safety Report 6856688-9 (Version None)
Quarter: 2010Q3

REPORT INFORMATION
  Report Type: 
  Country: None (occurrence: None)
  Receive Date: 20100719
  Receipt Date: 20100707
  Transmission Date: 20110219
  Serious: Yes (Life-Threatening, Other)
  Sender: FDA-Public Use
  Company Number: BR-PFIZER INC-2010084476

PATIENT
  Sex: Female

DRUGS (1)
  1. DEPO-PROVERA [Suspect]
     Indication: CONTRACEPTION
     Dosage: 150 MG, EVERY 90 DAYS
     Route: 030
     Dates: start: 20090807

REACTIONS (7)
  - DRUG INEFFECTIVE [None]
  - EMOTIONAL DISORDER [None]
  - PLACENTA PRAEVIA [None]
  - PREMATURE SEPARATION OF PLACENTA [None]
  - SYNCOPE [None]
  - UNINTENDED PREGNANCY [None]
  - VAGINAL HAEMORRHAGE [None]
